FAERS Safety Report 17861927 (Version 1)
Quarter: 2020Q2

REPORT INFORMATION
  Report Type: Spontaneous
  Country: US (occurrence: US)
  Receive Date: 20200604
  Receipt Date: 20200604
  Transmission Date: 20200714
  Serious: No
  Sender: FDA-Public Use
  Company Number: US-VISTAPHARM, INC.-VER201909-000983

PATIENT
  Age: 50 Year
  Sex: Female
  Weight: 51.7 kg

DRUGS (7)
  1. PROMETHAZINE [Concomitant]
     Active Substance: PROMETHAZINE HYDROCHLORIDE
     Indication: IMPAIRED GASTRIC EMPTYING
     Dosage: UNKNOWN
  2. PROTONIX [Concomitant]
     Active Substance: PANTOPRAZOLE SODIUM
     Indication: PRODUCT USED FOR UNKNOWN INDICATION
     Dosage: UNKNOWN
  3. OXYCODONE [Suspect]
     Active Substance: OXYCODONE
     Dosage: 5 MG/5 ML
     Route: 048
  4. OXYCODONE [Suspect]
     Active Substance: OXYCODONE
     Indication: PAIN
     Dosage: 20 MG/ML,1 ML EVERY 4 HOURS AS NEEDED (100 MG/5 ML)
     Route: 048
     Dates: end: 20190906
  5. DOMPERIDONE [Concomitant]
     Active Substance: DOMPERIDONE
     Indication: IMPAIRED GASTRIC EMPTYING
     Dosage: UNKNOWN
     Route: 048
  6. ZOFRAN [Concomitant]
     Active Substance: ONDANSETRON HYDROCHLORIDE
     Indication: IMPAIRED GASTRIC EMPTYING
     Dosage: UNKNOWN
  7. HYDRATION THERAPY [Concomitant]
     Indication: IMPAIRED GASTRIC EMPTYING
     Dosage: UNKNOWN
     Route: 042

REACTIONS (3)
  - Pain [Unknown]
  - Blood pressure increased [Unknown]
  - Product physical issue [Unknown]
